FAERS Safety Report 14698503 (Version 5)
Quarter: 2018Q2

REPORT INFORMATION
  Report Type: Other
  Country: IT (occurrence: IT)
  Receive Date: 20180330
  Receipt Date: 20180525
  Transmission Date: 20180711
  Serious: Yes (Other)
  Sender: FDA-Public Use
  Company Number: IT-ASPEN-GLO2018IT002698

PATIENT
  Age: 19 Year
  Sex: Female

DRUGS (32)
  1. CYTARABINE. [Suspect]
     Active Substance: CYTARABINE
     Dosage: UNK
     Route: 058
  2. FLUDARABINE [Suspect]
     Active Substance: FLUDARABINE PHOSPHATE
     Indication: ACUTE LYMPHOCYTIC LEUKAEMIA
     Dosage: 50 MG/M2 DAY 3-4-5, CYCLIC
     Route: 065
     Dates: start: 20150904
  3. LENOGRASTIM [Suspect]
     Active Substance: LENOGRASTIM
     Indication: ACUTE LYMPHOCYTIC LEUKAEMIA
     Dosage: 5 ?G/KG, DAILY, CYCLIC (CYCLE 3)
     Route: 058
  4. LENOGRASTIM [Suspect]
     Active Substance: LENOGRASTIM
     Dosage: 5 ?G/KG, CYCLIC, ANC{0.5 TO }1.0 (CYCLE 2)
     Route: 058
  5. LENOGRASTIM [Suspect]
     Active Substance: LENOGRASTIM
     Dosage: 5 ?G/KG, CYCLIC, 5 TO ANC } 1.0
     Route: 058
  6. IDARUBICIN [Suspect]
     Active Substance: IDARUBICIN
     Indication: ACUTE LYMPHOCYTIC LEUKAEMIA
     Dosage: 12 MG/M2, /D, CYCLIC; DAY 1,2 (CYCLE1 AND 2){/
     Route: 042
  7. CYTARABINE. [Suspect]
     Active Substance: CYTARABINE
     Indication: ACUTE LYMPHOCYTIC LEUKAEMIA
     Dosage: 2000 MG/M2, 2XDAY, CYCLIC (Q12H) CYCLE 7
     Route: 042
  8. DEXAMETHASONE SODIUM PHOSPHATE. [Suspect]
     Active Substance: DEXAMETHASONE SODIUM PHOSPHATE
     Dosage: 5 MG/M2, 2XDAY, CYCLIC; DAY 1-5 (CYCLE 2)
     Route: 042
  9. METHOTREXATE. [Suspect]
     Active Substance: METHOTREXATE
     Indication: ACUTE LYMPHOCYTIC LEUKAEMIA
     Dosage: 5000 MG/M2, CYCLIC
     Route: 042
  10. BLINCYTO [Suspect]
     Active Substance: BLINATUMOMAB
     Indication: ACUTE LYMPHOCYTIC LEUKAEMIA
     Dosage: UNK
     Route: 042
  11. INOTUZUMAB OZOGAMICIN [Concomitant]
     Active Substance: INOTUZUMAB OZOGAMICIN
     Indication: PRODUCT USED FOR UNKNOWN INDICATION
     Dosage: UNK
     Route: 065
  12. MERCAPTOPURINE. [Suspect]
     Active Substance: MERCAPTOPURINE
     Indication: ACUTE LYMPHOCYTIC LEUKAEMIA
     Dosage: 60 MG/M2, DAILY, CYCLIC, DAY 1-14
     Route: 048
  13. FILGRASTIM [Suspect]
     Active Substance: FILGRASTIM
     Dosage: 5 MUG/KG, DAILY, CYCLIC, ANC{0.5 TO }1.0 (CYCLE 2)
     Route: 058
  14. BUSULFAN. [Suspect]
     Active Substance: BUSULFAN
     Indication: ACUTE LYMPHOCYTIC LEUKAEMIA
     Dosage: 9.6 MG/KG
     Route: 042
  15. FILGRASTIM [Suspect]
     Active Substance: FILGRASTIM
     Indication: ACUTE LYMPHOCYTIC LEUKAEMIA
     Dosage: 5 MCG/KG, DAILY, CYCLIC, 5 TO ANC }1.0
     Route: 058
  16. LENOGRASTIM [Suspect]
     Active Substance: LENOGRASTIM
     Dosage: 10 ?G/M2, DAILY, CYCLIC (CYCLE 7) , 8 TO HARVEST/ANC GREATER THAN 1.0
     Route: 058
  17. DEXAMETHASONE SODIUM PHOSPHATE. [Suspect]
     Active Substance: DEXAMETHASONE SODIUM PHOSPHATE
     Indication: ACUTE LYMPHOCYTIC LEUKAEMIA
     Dosage: 5 MG/M2, 2XDAY, CYCLIC; DAY 1-5 (CYCLE 2)
     Route: 048
  18. DEXAMETHASONE SODIUM PHOSPHATE. [Suspect]
     Active Substance: DEXAMETHASONE SODIUM PHOSPHATE
     Dosage: 5 MG/M2, 2XDAY, CYCLIC; DAY 1-5, 15-19
     Route: 042
  19. CYCLOPHOSPHAMIDE. [Suspect]
     Active Substance: CYCLOPHOSPHAMIDE
     Indication: ACUTE LYMPHOCYTIC LEUKAEMIA
     Dosage: 1000 MG/M2, DAILY, CYCLIC (CYCLE 2)
     Route: 042
  20. FILGRASTIM [Suspect]
     Active Substance: FILGRASTIM
     Dosage: 10 ?G/KG, (CYCLE 7), 8 TO HARVEST/ANC GREATER THAN 1.0
     Route: 065
  21. PREDNISONE. [Suspect]
     Active Substance: PREDNISONE
     Indication: ACUTE LYMPHOCYTIC LEUKAEMIA
     Dosage: 20 MG/M2, 2XDAY (Q12 H), CYCLIC
     Route: 048
  22. CYTARABINE. [Suspect]
     Active Substance: CYTARABINE
     Dosage: 75 MG/M2, DAILY, CYCLIC (CYCLE 2), DAY 2-5, 9-12
     Route: 042
  23. VINCRISTINE SULFATE. [Suspect]
     Active Substance: VINCRISTINE SULFATE
     Indication: ACUTE LYMPHOCYTIC LEUKAEMIA
     Dosage: 1.4 MG/M2, CYCLIC (MAX 2 MG), INFUSION TIME:PUSH
     Route: 042
  24. BLINATUMOMAB [Suspect]
     Active Substance: BLINATUMOMAB
     Indication: ACUTE LYMPHOCYTIC LEUKAEMIA
     Dosage: ONLY ONE CYCLE
     Route: 065
  25. CYTARABINE. [Suspect]
     Active Substance: CYTARABINE
     Dosage: 75 MG/M2, DAILY, CYCLIC (CYCLE 2)
     Route: 042
  26. LENOGRASTIM [Suspect]
     Active Substance: LENOGRASTIM
     Dosage: UNK, QD
     Route: 065
  27. CYCLOPHOSPHAMIDE. [Suspect]
     Active Substance: CYCLOPHOSPHAMIDE
     Dosage: 300 MG/M2, QD
     Route: 042
  28. FOLINIC ACID [Suspect]
     Active Substance: LEUCOVORIN
     Indication: ACUTE LYMPHOCYTIC LEUKAEMIA
     Dosage: UNK
     Route: 042
  29. FILGRASTIM [Suspect]
     Active Substance: FILGRASTIM
     Dosage: 5 ?G/KG, DAILY, CYCLIC (CYCLE 3)
     Route: 058
  30. LENOGRASTIM [Suspect]
     Active Substance: LENOGRASTIM
     Dosage: 5 MUG/KG, QD (CYCLIC CYCLE 3)
     Route: 058
  31. CYCLOPHOSPHAMIDE. [Suspect]
     Active Substance: CYCLOPHOSPHAMIDE
     Dosage: 300 MG/M2 DAILY, CYCLIC, DAY -3 TO-1
     Route: 042
  32. THIOTEPA. [Suspect]
     Active Substance: THIOTEPA
     Indication: ACUTE LYMPHOCYTIC LEUKAEMIA
     Dosage: 5MG/KG DAY1-2, CYCLIC
     Route: 042
     Dates: start: 20150904

REACTIONS (4)
  - Neoplasm recurrence [Unknown]
  - Neurotoxicity [Recovered/Resolved]
  - Acute lymphocytic leukaemia recurrent [Unknown]
  - Seizure [Recovered/Resolved]
